APPROVED DRUG PRODUCT: CEFAZOLIN SODIUM
Active Ingredient: CEFAZOLIN SODIUM
Strength: EQ 10GM BASE/VIAL
Dosage Form/Route: INJECTABLE;INJECTION
Application: A062831 | Product #003 | TE Code: AP
Applicant: SANDOZ INC
Approved: Sep 25, 1992 | RLD: No | RS: No | Type: RX